FAERS Safety Report 12119917 (Version 1)
Quarter: 2016Q1

REPORT INFORMATION
  Report Type: Spontaneous
  Country: FR (occurrence: FR)
  Receive Date: 20160226
  Receipt Date: 20160226
  Transmission Date: 20160526
  Serious: Yes (Hospitalization)
  Sender: FDA-Public Use
  Company Number: FR-ABBVIE-16P-056-1568709-00

PATIENT
  Age: 48 Year
  Sex: Male

DRUGS (22)
  1. DEPAKINE CHRONO [Suspect]
     Active Substance: VALPROATE SODIUM
     Indication: PRODUCT USED FOR UNKNOWN INDICATION
     Route: 048
  2. DEPAKINE CHRONO [Suspect]
     Active Substance: VALPROATE SODIUM
     Route: 048
     Dates: start: 201601, end: 201601
  3. LORAZEPAM. [Suspect]
     Active Substance: LORAZEPAM
     Indication: PRODUCT USED FOR UNKNOWN INDICATION
     Route: 048
  4. LORAZEPAM. [Suspect]
     Active Substance: LORAZEPAM
     Dosage: ONCE
     Route: 048
     Dates: start: 201601, end: 201601
  5. LUDIOMIL [Suspect]
     Active Substance: MAPROTILINE HYDROCHLORIDE
     Indication: PRODUCT USED FOR UNKNOWN INDICATION
     Dosage: 1 DOSAGE FORM
     Route: 048
  6. LUDIOMIL [Suspect]
     Active Substance: MAPROTILINE HYDROCHLORIDE
     Dosage: 1 DOSAGE FORM
     Route: 048
  7. LORAZEPAM. [Suspect]
     Active Substance: LORAZEPAM
     Route: 048
  8. VENLAFAXINE HYDROCHLORIDE. [Suspect]
     Active Substance: VENLAFAXINE HYDROCHLORIDE
     Dosage: ONCE
     Route: 048
     Dates: start: 201601, end: 201601
  9. SERTRALINE HYDROCHLORIDE. [Suspect]
     Active Substance: SERTRALINE HYDROCHLORIDE
     Route: 048
  10. KARDEGIC [Concomitant]
     Active Substance: ASPIRIN LYSINE
     Indication: PRODUCT USED FOR UNKNOWN INDICATION
  11. VENLAFAXINE HYDROCHLORIDE. [Suspect]
     Active Substance: VENLAFAXINE HYDROCHLORIDE
     Route: 048
  12. AMLOR [Concomitant]
     Active Substance: AMLODIPINE BESYLATE
     Indication: PRODUCT USED FOR UNKNOWN INDICATION
  13. LORAZEPAM. [Suspect]
     Active Substance: LORAZEPAM
     Dosage: ONCE
     Route: 048
     Dates: start: 201601, end: 201601
  14. SERTRALINE HYDROCHLORIDE. [Suspect]
     Active Substance: SERTRALINE HYDROCHLORIDE
     Indication: PRODUCT USED FOR UNKNOWN INDICATION
     Route: 048
  15. SERTRALINE HYDROCHLORIDE. [Suspect]
     Active Substance: SERTRALINE HYDROCHLORIDE
     Dosage: ONCE
     Route: 048
     Dates: start: 201601, end: 201601
  16. DEPAKINE CHRONO [Suspect]
     Active Substance: VALPROATE SODIUM
     Route: 048
  17. LORAZEPAM. [Suspect]
     Active Substance: LORAZEPAM
     Route: 048
  18. VENLAFAXINE HYDROCHLORIDE. [Suspect]
     Active Substance: VENLAFAXINE HYDROCHLORIDE
     Indication: PRODUCT USED FOR UNKNOWN INDICATION
     Route: 048
  19. TAHOR [Concomitant]
     Active Substance: ATORVASTATIN CALCIUM
     Indication: PRODUCT USED FOR UNKNOWN INDICATION
  20. ISOPTINE [Concomitant]
     Active Substance: VERAPAMIL HYDROCHLORIDE
     Indication: PRODUCT USED FOR UNKNOWN INDICATION
  21. LUDIOMIL [Suspect]
     Active Substance: MAPROTILINE HYDROCHLORIDE
     Dosage: 16 DOSAGE FORM, ONCE
     Route: 048
     Dates: start: 201601, end: 201601
  22. LORAZEPAM. [Suspect]
     Active Substance: LORAZEPAM
     Route: 048

REACTIONS (2)
  - Mydriasis [Unknown]
  - Somnolence [Recovered/Resolved]

NARRATIVE: CASE EVENT DATE: 201601
